FAERS Safety Report 25450379 (Version 1)
Quarter: 2025Q2

REPORT INFORMATION
  Report Type: Spontaneous
  Country: US (occurrence: None)
  Receive Date: 20250610
  Receipt Date: 20250610
  Transmission Date: 20250716
  Serious: No
  Sender: FDA-CTU
  Company Number: None

PATIENT
  Age: 76 Year
  Sex: Female

DRUGS (1)
  1. ABECMA [Suspect]
     Active Substance: IDECABTAGENE VICLEUCEL
     Dates: start: 20250507

REACTIONS (1)
  - Cytokine release syndrome [None]

NARRATIVE: CASE EVENT DATE: 20250509
